FAERS Safety Report 4979500-1 (Version None)
Quarter: 2006Q2

REPORT INFORMATION
  Report Type: 
  Country: None (occurrence: None)
  Receive Date: 20060418
  Receipt Date: 20060404
  Transmission Date: 20061013
  Serious: Yes (Hospitalization)
  Sender: FDA-Public Use
  Company Number: 2006P1000167

PATIENT
  Age: 66 Year
  Weight: 70 kg

DRUGS (4)
  1. RETEPLASE (RETEPLASE) [Suspect]
     Indication: ACUTE MYOCARDIAL INFARCTION
     Dosage: IV
     Route: 030
  2. REOPRO [Suspect]
     Indication: ACUTE MYOCARDIAL INFARCTION
     Dosage: IV
     Route: 042
  3. HEPARIN [Concomitant]
  4. HEPARIN [Concomitant]

REACTIONS (2)
  - CORONARY ARTERY DISEASE [None]
  - INJECTION SITE HAEMATOMA [None]
